FAERS Safety Report 5019503-4 (Version None)
Quarter: 2006Q2

REPORT INFORMATION
  Report Type: 
  Country: None (occurrence: None)
  Receive Date: 20060605
  Receipt Date: 20060605
  Transmission Date: 20061013
  Serious: Yes (Hospitalization)
  Sender: FDA-Public Use
  Company Number: None

PATIENT
  Age: 50 Year
  Sex: Female
  Weight: 62.5964 kg

DRUGS (8)
  1. ADRIAMYCIN PFS [Suspect]
     Indication: FIBROSARCOMA
     Dosage: 75 MG/M2
     Dates: start: 20060524, end: 20060526
  2. IFOSFAMIDE [Suspect]
     Dosage: 2.5 MG/M2
  3. VICODIN [Concomitant]
  4. ATIVAN [Concomitant]
  5. COMPAZINE [Concomitant]
  6. DEXAMETHASONE TAB [Concomitant]
  7. KYTRIL [Concomitant]
  8. NEULASTA [Concomitant]

REACTIONS (11)
  - DEHYDRATION [None]
  - DYSPHAGIA [None]
  - ERYTHEMA [None]
  - GASTROOESOPHAGEAL REFLUX DISEASE [None]
  - LARYNGEAL OEDEMA [None]
  - MUCOSAL INFLAMMATION [None]
  - NEUTROPENIA [None]
  - OESOPHAGEAL PAIN [None]
  - ORAL CANDIDIASIS [None]
  - ORAL INTAKE REDUCED [None]
  - VOCAL CORD DISORDER [None]
